FAERS Safety Report 8017381-2 (Version None)
Quarter: 2012Q1

REPORT INFORMATION
  Report Type: 
  Country: None (occurrence: None)
  Receive Date: 20120102
  Receipt Date: 20111221
  Transmission Date: 20120608
  Serious: Yes (Disabling)
  Sender: FDA-Public Use
  Company Number: CA-ROCHE-1024006

PATIENT
  Sex: Female
  Weight: 45.4 kg

DRUGS (4)
  1. STATEX (CANADA) [Concomitant]
     Route: 048
  2. PREDNISONE [Concomitant]
  3. ACTEMRA [Suspect]
     Indication: RHEUMATOID ARTHRITIS
     Route: 042
  4. ACETAMINOPHEN [Concomitant]
     Route: 048

REACTIONS (5)
  - MYOSITIS [None]
  - NIGHTMARE [None]
  - ABDOMINAL DISCOMFORT [None]
  - GINGIVAL BLEEDING [None]
  - ARTHRITIS [None]
